FAERS Safety Report 20855691 (Version 2)
Quarter: 2022Q3

REPORT INFORMATION
  Report Type: Spontaneous
  Country: FR (occurrence: FR)
  Receive Date: 20220520
  Receipt Date: 20220921
  Transmission Date: 20221027
  Serious: Yes (Death, Other)
  Sender: FDA-Public Use
  Company Number: FR-002147023-NVSC2021FR229430

PATIENT
  Age: 46 Year
  Sex: Male
  Weight: 73 kg

DRUGS (4)
  1. CYTARABINE [Suspect]
     Active Substance: CYTARABINE
     Dosage: 5000 MG
     Route: 042
     Dates: start: 20180814, end: 20180817
  2. NELARABINE [Suspect]
     Active Substance: NELARABINE
     Dosage: 2685 MG
     Route: 065
     Dates: start: 20180709
  3. NELARABINE [Suspect]
     Active Substance: NELARABINE
     Dosage: 2685 MG
     Route: 065
     Dates: start: 20180711
  4. NELARABINE [Suspect]
     Active Substance: NELARABINE
     Dosage: 2685 MG
     Route: 065
     Dates: start: 20180713

REACTIONS (4)
  - Shock [Fatal]
  - Septic shock [Fatal]
  - Shock haemorrhagic [Fatal]
  - Autologous haematopoietic stem cell transplant [Unknown]

NARRATIVE: CASE EVENT DATE: 20180914
